FAERS Safety Report 17347283 (Version 1)
Quarter: 2020Q1

REPORT INFORMATION
  Report Type: Report from Study
  Country: US (occurrence: US)
  Receive Date: 20200129
  Receipt Date: 20200129
  Transmission Date: 20200409
  Serious: Yes (Hospitalization)
  Sender: FDA-Public Use
  Company Number: US-EXELIXIS-CABO-19018870

PATIENT
  Sex: Male
  Weight: 93.88 kg

DRUGS (33)
  1. CABOMETYX [Suspect]
     Active Substance: CABOZANTINIB S-MALATE
     Indication: RENAL CELL CARCINOMA
     Dosage: 20 MG, QD
     Route: 048
     Dates: end: 201902
  2. LENVIMA [Suspect]
     Active Substance: LENVATINIB
     Indication: METASTASES TO BONE
  3. TIZANIDINE HCL [Concomitant]
     Active Substance: TIZANIDINE HYDROCHLORIDE
  4. HYDROCODONE/ACETAMINOPHEN [Concomitant]
     Active Substance: ACETAMINOPHEN\HYDROCODONE
  5. OMEPRAZOLE. [Concomitant]
     Active Substance: OMEPRAZOLE
  6. NYSTATIN. [Concomitant]
     Active Substance: NYSTATIN
  7. CABOMETYX [Suspect]
     Active Substance: CABOZANTINIB S-MALATE
     Indication: METASTASES TO PANCREAS
  8. LENVIMA [Suspect]
     Active Substance: LENVATINIB
     Indication: METASTASES TO PANCREAS
     Dosage: UNK
     Dates: start: 201907
  9. ONDANSETRON ODT DRLA [Concomitant]
     Active Substance: ONDANSETRON
  10. METHYLPREDNISOLONE. [Concomitant]
     Active Substance: METHYLPREDNISOLONE
  11. DESONIDE. [Concomitant]
     Active Substance: DESONIDE
  12. CABOMETYX [Suspect]
     Active Substance: CABOZANTINIB S-MALATE
     Indication: METASTASES TO BONE
  13. LENVIMA [Suspect]
     Active Substance: LENVATINIB
     Indication: METASTASES TO LIVER
     Dosage: UNK
  14. LENVIMA [Suspect]
     Active Substance: LENVATINIB
     Indication: METASTASIS
  15. CELECOXIB. [Concomitant]
     Active Substance: CELECOXIB
  16. AMITRIPTYLINE [Concomitant]
     Active Substance: AMITRIPTYLINE
  17. AZITHROMYCIN ANHYDROUS. [Concomitant]
     Active Substance: AZITHROMYCIN ANHYDROUS
  18. LATUDA [Concomitant]
     Active Substance: LURASIDONE HYDROCHLORIDE
  19. CABOMETYX [Suspect]
     Active Substance: CABOZANTINIB S-MALATE
     Indication: METASTASES TO LIVER
  20. CABOMETYX [Suspect]
     Active Substance: CABOZANTINIB S-MALATE
     Indication: METASTASIS
  21. NUCYNTA [Concomitant]
     Active Substance: TAPENTADOL HYDROCHLORIDE
  22. ENOXAPARIN SODIUM. [Concomitant]
     Active Substance: ENOXAPARIN SODIUM
  23. DULOXETINE HCL [Concomitant]
     Active Substance: DULOXETINE HYDROCHLORIDE
  24. LYRICA [Concomitant]
     Active Substance: PREGABALIN
  25. BUPROPION. [Concomitant]
     Active Substance: BUPROPION
     Dosage: UNK
  26. LENVIMA [Suspect]
     Active Substance: LENVATINIB
     Indication: RENAL CELL CARCINOMA
     Dosage: UNK
     Dates: start: 20190512, end: 20190604
  27. LORAZEPAM. [Concomitant]
     Active Substance: LORAZEPAM
  28. VITAMIN C [Concomitant]
     Active Substance: ASCORBIC ACID
  29. GABAPENTIN. [Concomitant]
     Active Substance: GABAPENTIN
  30. HALOBETASOL PROPIONATE. [Concomitant]
     Active Substance: HALOBETASOL PROPIONATE
  31. DROSPIRENONE AND ETHINYL ESTRADIOL [Concomitant]
     Active Substance: DROSPIRENONE\ETHINYL ESTRADIOL
  32. IRON [Concomitant]
     Active Substance: IRON
     Dosage: UNK
  33. NARCAN [Concomitant]
     Active Substance: NALOXONE HYDROCHLORIDE
     Dosage: UNK

REACTIONS (11)
  - Visual impairment [Not Recovered/Not Resolved]
  - Haemoglobin decreased [Recovered/Resolved]
  - Nausea [Recovering/Resolving]
  - Blood pressure increased [Unknown]
  - Diarrhoea [Recovering/Resolving]
  - Drug ineffective [Unknown]
  - Dysphonia [Unknown]
  - Arthralgia [Not Recovered/Not Resolved]
  - Weight decreased [Unknown]
  - Dysphagia [Unknown]
  - Malignant neoplasm progression [Unknown]
